FAERS Safety Report 5405465-4 (Version None)
Quarter: 2007Q3

REPORT INFORMATION
  Report Type: 
  Country: None (occurrence: None)
  Receive Date: 20070803
  Receipt Date: 20070722
  Transmission Date: 20080115
  Serious: Yes (Other)
  Sender: FDA-Public Use
  Company Number: US-PFIZER INC-2007060173

PATIENT
  Sex: Female
  Weight: 64.545 kg

DRUGS (1)
  1. DEPO-MEDROL [Suspect]
     Indication: MUSCULOSKELETAL PAIN
     Dates: start: 20070501, end: 20070501

REACTIONS (12)
  - ADRENAL DISORDER [None]
  - ANXIETY [None]
  - BLOOD IRON DECREASED [None]
  - GASTRITIS [None]
  - HEADACHE [None]
  - HELICOBACTER INFECTION [None]
  - INSOMNIA [None]
  - NIGHT SWEATS [None]
  - PAIN IN JAW [None]
  - TREMOR [None]
  - VISION BLURRED [None]
  - WEIGHT DECREASED [None]
